FAERS Safety Report 9055411 (Version 1)
Quarter: 2013Q1

REPORT INFORMATION
  Report Type: Spontaneous
  Country: US (occurrence: US)
  Receive Date: 20130206
  Receipt Date: 20130206
  Transmission Date: 20140127
  Serious: Yes (Hospitalization)
  Sender: FDA-Public Use
  Company Number: US-BAYER-2013-015029

PATIENT
  Age: 32 Year
  Sex: Female

DRUGS (8)
  1. YAZ [Suspect]
     Dosage: UNK, DAILY
     Route: 048
  2. YASMIN [Suspect]
  3. OCELLA [Suspect]
  4. PERCOCET [OXYCODONE HYDROCHLORIDE,OXYCODONE TEREPHTHALATE,PARACETA [Concomitant]
     Indication: PAIN
     Dosage: UNK, AT NIGHT
  5. KETOROLAC [Concomitant]
     Dosage: 0.5 %, UNK
     Route: 047
  6. DIFFERIN [Concomitant]
     Dosage: 0.3 UNK, UNK
  7. CLINDAMYCIN [Concomitant]
     Dosage: 150 MG, UNK
  8. ROXICET [Concomitant]
     Dosage: 5-325

REACTIONS (1)
  - Pulmonary embolism [Recovered/Resolved]
